FAERS Safety Report 14514061 (Version 1)
Quarter: 2018Q1

REPORT INFORMATION
  Report Type: Spontaneous
  Country: US (occurrence: US)
  Receive Date: 20180208
  Receipt Date: 20180208
  Transmission Date: 20180509
  Serious: No
  Sender: FDA-Public Use
  Company Number: None

PATIENT
  Age: 63 Year
  Sex: Female
  Weight: 85.73 kg

DRUGS (1)
  1. CAPECITABINE 500 MG TABS MYL 500MG OR [Suspect]
     Active Substance: CAPECITABINE
     Dosage: 3 TABLETS EVERY MORNING AND 2 TABLES EVERY EVENING  MONDAY-FRIADY ORALLY???????
     Route: 048
     Dates: start: 20170922

REACTIONS (1)
  - Rash [None]

NARRATIVE: CASE EVENT DATE: 20180201
